FAERS Safety Report 20791909 (Version 1)
Quarter: 2022Q2

REPORT INFORMATION
  Report Type: Report from Study
  Country: JP (occurrence: JP)
  Receive Date: 20220505
  Receipt Date: 20220505
  Transmission Date: 20220720
  Serious: Yes (Hospitalization, Other)
  Sender: FDA-Public Use
  Company Number: JP-RPC01-3103-1471005-20210508-0001SG

PATIENT
  Age: 22 Year
  Sex: Male
  Weight: 52 kg

DRUGS (6)
  1. OZANIMOD [Suspect]
     Active Substance: OZANIMOD
     Indication: Colitis
     Dosage: 1 CAPSULE X 1 X 1 DAYS
     Route: 048
     Dates: start: 20190920, end: 20190923
  2. LAMOTRIGINE [Concomitant]
     Active Substance: LAMOTRIGINE
     Indication: Epilepsy
     Dosage: 150 MG
     Route: 048
     Dates: start: 2013
  3. ACETAMINOPHEN [Concomitant]
     Active Substance: ACETAMINOPHEN
     Indication: Colitis ulcerative
     Dosage: 500 MG?FREQUENCY : PRN
     Route: 048
     Dates: start: 20190906
  4. MIYA-BM [Concomitant]
     Active Substance: CLOSTRIDIUM BUTYRICUM SPORES STRAIN M-55
     Indication: Colitis ulcerative
     Dosage: 120 MG
     Route: 048
     Dates: start: 20190705
  5. VONOPRAZAN FUMARATE [Concomitant]
     Active Substance: VONOPRAZAN FUMARATE
     Indication: Prophylaxis
     Dosage: 10 MG
     Route: 048
     Dates: start: 20190802
  6. BIOFERMIN-R [Concomitant]
     Indication: Colitis ulcerative
     Dosage: 108 MILLIGRAM
     Dates: start: 20190705

REACTIONS (1)
  - Appendicitis [Recovered/Resolved]

NARRATIVE: CASE EVENT DATE: 20210508
